FAERS Safety Report 5827261-6 (Version None)
Quarter: 2008Q3

REPORT INFORMATION
  Report Type: 
  Country: None (occurrence: None)
  Receive Date: 20080725
  Receipt Date: 20080714
  Transmission Date: 20090109
  Serious: Yes (Hospitalization)
  Sender: FDA-Public Use
  Company Number: 2008AL008209

PATIENT
  Age: 69 Year
  Sex: Male

DRUGS (1)
  1. DEXAMETHASONE [Suspect]
     Indication: THROMBOCYTOPENIA
     Dosage: 40 MG; QD;

REACTIONS (5)
  - GENERAL PHYSICAL HEALTH DETERIORATION [None]
  - HYPERVENTILATION [None]
  - HYPOXIA [None]
  - PNEUMONIA LEGIONELLA [None]
  - RESPIRATORY ALKALOSIS [None]
